FAERS Safety Report 13930159 (Version 1)
Quarter: 2017Q3

REPORT INFORMATION
  Report Type: Spontaneous
  Country: US (occurrence: US)
  Receive Date: 20170901
  Receipt Date: 20170901
  Transmission Date: 20171127
  Serious: Yes (Other)
  Sender: FDA-Public Use
  Company Number: US-MYLANLABS-2017M1053859

PATIENT
  Sex: Male

DRUGS (4)
  1. TESTOSTERONE. [Suspect]
     Active Substance: TESTOSTERONE
     Indication: ADRENOGENITAL SYNDROME
     Dosage: MONTHLY DEPOT IM INJECTIONS 50MG
     Route: 030
  2. HYDROCORTISONE. [Suspect]
     Active Substance: HYDROCORTISONE
     Indication: ADRENOGENITAL SYNDROME
     Dosage: 60MG DAILY (40MG MORNING; 20MG NIGHT)
     Route: 065
  3. TETRACOSACTIDE [Concomitant]
     Active Substance: COSYNTROPIN
     Indication: ACTH STIMULATION TEST
     Dosage: 250MCG
     Route: 065
  4. HYDROCORTISONE. [Suspect]
     Active Substance: HYDROCORTISONE
     Dosage: 30 MG, QD

REACTIONS (2)
  - Aggression [Unknown]
  - Body height below normal [Unknown]
